FAERS Safety Report 20495556 (Version 2)
Quarter: 2022Q2

REPORT INFORMATION
  Report Type: Spontaneous
  Country: DE (occurrence: DE)
  Receive Date: 20220221
  Receipt Date: 20220408
  Transmission Date: 20220721
  Serious: Yes (Other)
  Sender: FDA-Public Use
  Company Number: DE-PFIZER INC-2021813436

PATIENT
  Age: 61 Year
  Sex: Female

DRUGS (1)
  1. DALTEPARIN SODIUM [Suspect]
     Active Substance: DALTEPARIN SODIUM
     Dosage: 5000 IU, 1X/DAY
     Dates: start: 2021, end: 2021

REACTIONS (2)
  - Urticaria [Unknown]
  - Injection site pustule [Unknown]

NARRATIVE: CASE EVENT DATE: 20210101
